FAERS Safety Report 25219082 (Version 2)
Quarter: 2025Q2

REPORT INFORMATION
  Report Type: Spontaneous
  Country: US (occurrence: US)
  Receive Date: 20250421
  Receipt Date: 20250423
  Transmission Date: 20250717
  Serious: No
  Sender: NOVARTIS
  Company Number: US-002147023-NVSC2025US060457

PATIENT
  Sex: Female

DRUGS (2)
  1. LEQVIO [Suspect]
     Active Substance: INCLISIRAN SODIUM
     Indication: Product used for unknown indication
     Route: 065
     Dates: start: 20241018
  2. LEQVIO [Suspect]
     Active Substance: INCLISIRAN SODIUM
     Route: 065
     Dates: start: 20250124

REACTIONS (6)
  - Limb discomfort [Unknown]
  - Muscle discomfort [Unknown]
  - Neck pain [Unknown]
  - Insomnia [Unknown]
  - Injection site pruritus [Unknown]
  - Injection site rash [Unknown]
